FAERS Safety Report 24320644 (Version 1)
Quarter: 2024Q3

REPORT INFORMATION
  Report Type: Spontaneous
  Country: GB (occurrence: GB)
  Receive Date: 20240915
  Receipt Date: 20240915
  Transmission Date: 20241016
  Serious: Yes (Other)
  Sender: AUROBINDO
  Company Number: GB-MHRA-TPP5695104C581080YC1725638235203

PATIENT
  Age: 62 Year
  Sex: Female
  Weight: 73 kg

DRUGS (5)
  1. ATORVASTATIN [Suspect]
     Active Substance: ATORVASTATIN
     Indication: Product used for unknown indication
     Dosage: 1 DOSAGE FORM, DAILY (ATORVASTATIN 20MG TABLETSTAKE ONE DAILY TO LOWER CHOLESTEROL AND THEREFO...)
     Route: 065
     Dates: start: 20240730
  2. LANSOPRAZOLE [Concomitant]
     Active Substance: LANSOPRAZOLE
     Indication: Product used for unknown indication
     Dosage: 1 DOSAGE FORM, DAILY (TAKE ONE DAILY FOR ULCERS/INDIGESTION AS ON NAP...)
     Route: 065
     Dates: start: 20221209
  3. NAPROXEN [Concomitant]
     Active Substance: NAPROXEN
     Indication: Product used for unknown indication
     Dosage: 1 DOSAGE FORM, DAILY (TAKE ONE TWICE DAILY FOR PAIN RELIEF +/OR ARTHR...)
     Route: 065
     Dates: start: 20221209
  4. Adcal [Concomitant]
     Indication: Product used for unknown indication
     Dosage: 1 DOSAGE FORM, TWO TIMES A DAY (TAKE ONE TWICE DAILY)
     Route: 065
     Dates: start: 20240221
  5. APIXABAN [Concomitant]
     Active Substance: APIXABAN
     Indication: Product used for unknown indication
     Dosage: 1 DOSAGE FORM, TWO TIMES A DAY (TAKE ONE TWICE DAILY)
     Route: 065
     Dates: start: 20240822

REACTIONS (1)
  - Fixed eruption [Recovering/Resolving]
